FAERS Safety Report 20850957 (Version 2)
Quarter: 2022Q4

REPORT INFORMATION
  Report Type: Spontaneous
  Country: US (occurrence: US)
  Receive Date: 20220519
  Receipt Date: 20221228
  Transmission Date: 20230112
  Serious: Yes (Hospitalization, Disabling)
  Sender: FDA-Public Use
  Company Number: US-ELI_LILLY_AND_COMPANY-US202205007989

PATIENT
  Sex: Female

DRUGS (5)
  1. HUMULIN R [Suspect]
     Active Substance: INSULIN HUMAN
     Indication: Type 2 diabetes mellitus
     Dosage: UNK UNK, UNKNOWN
     Route: 058
     Dates: start: 2002
  2. HUMULIN R [Suspect]
     Active Substance: INSULIN HUMAN
     Dosage: UNK UNK, UNKNOWN
     Route: 058
  3. HUMULIN R [Suspect]
     Active Substance: INSULIN HUMAN
     Dosage: 1 ML, DAILY
     Route: 058
  4. HUMULIN R [Suspect]
     Active Substance: INSULIN HUMAN
     Dosage: UNK UNK, DAILY
     Route: 058
  5. PREDNISONE [Suspect]
     Active Substance: PREDNISONE
     Indication: Leukaemia
     Dosage: UNK UNK, UNKNOWN
     Route: 065

REACTIONS (8)
  - Chronic inflammatory demyelinating polyradiculoneuropathy [Unknown]
  - COVID-19 [Recovering/Resolving]
  - Blood glucose decreased [Recovering/Resolving]
  - Eye disorder [Unknown]
  - Fatigue [Unknown]
  - Blood glucose abnormal [Unknown]
  - Blood glucose increased [Unknown]
  - Wrong technique in product usage process [Unknown]
